FAERS Safety Report 8930558 (Version 2)
Quarter: 2012Q4

REPORT INFORMATION
  Report Type: 
  Country: IN (occurrence: IN)
  Receive Date: 20121128
  Receipt Date: 20121220
  Transmission Date: 20130627
  Serious: Yes (Hospitalization)
  Sender: FDA-Public Use
  Company Number: PHHY2012IN107557

PATIENT
  Age: 71 Year
  Sex: Male

DRUGS (3)
  1. CICLOSPORIN [Suspect]
     Indication: IMMUNOSUPPRESSION
     Dosage: 100 mg, BID
  2. PREDNISOLONE [Suspect]
     Indication: IMMUNOSUPPRESSION
     Dosage: 5 mg, QD
  3. AZATHIOPRIM [Suspect]
     Indication: IMMUNOSUPPRESSION
     Dosage: 50 mg, QD

REACTIONS (11)
  - Cerebral infarction [Unknown]
  - Cranial nerve palsies multiple [Recovered/Resolved]
  - Hemiparesis [Recovered/Resolved]
  - Dysarthria [Recovered/Resolved]
  - Transient ischaemic attack [Unknown]
  - Embolism [Unknown]
  - Cardiac myxoma [Unknown]
  - Dyspnoea [Unknown]
  - Palpitations [Unknown]
  - Asthenia [Unknown]
  - Blood creatinine increased [Unknown]
